FAERS Safety Report 7298951-6 (Version None)
Quarter: 2011Q1

REPORT INFORMATION
  Report Type: 
  Country: None (occurrence: None)
  Receive Date: 20110217
  Receipt Date: 20110214
  Transmission Date: 20110831
  Serious: Yes (Other)
  Sender: FDA-Public Use
  Company Number: US-PFIZER INC-2011032739

PATIENT
  Sex: Female

DRUGS (1)
  1. ADVIL [Suspect]
     Indication: THERAPEUTIC PROCEDURE
     Dosage: UNK
     Dates: start: 20110201

REACTIONS (3)
  - BURNING SENSATION [None]
  - HAEMORRHAGE [None]
  - MUSCLE SPASMS [None]
